FAERS Safety Report 12240159 (Version 2)
Quarter: 2016Q2

REPORT INFORMATION
  Report Type: Spontaneous
  Country: BR (occurrence: BR)
  Receive Date: 20160405
  Receipt Date: 20160414
  Transmission Date: 20160815
  Serious: Yes (Hospitalization)
  Sender: FDA-Public Use
  Company Number: BR-PFIZER INC-2016178943

PATIENT
  Age: 75 Year
  Sex: Female

DRUGS (5)
  1. FRONTAL [Suspect]
     Active Substance: ALPRAZOLAM
     Indication: SLEEP DISORDER
     Dosage: 1 MG, 1X/DAY
     Route: 048
  2. EXODUS [Concomitant]
     Active Substance: ESCITALOPRAM OXALATE
     Indication: DEPRESSION
     Dosage: UNK
     Dates: start: 1991
  3. FRONTAL [Suspect]
     Active Substance: ALPRAZOLAM
     Indication: RELAXATION THERAPY
     Dosage: 1 MG, 2X/DAY
     Route: 048
     Dates: start: 2008
  4. FRONTAL [Suspect]
     Active Substance: ALPRAZOLAM
     Indication: BLOOD PRESSURE ABNORMAL
  5. FRONTAL [Suspect]
     Active Substance: ALPRAZOLAM
     Indication: CARDIAC DISORDER

REACTIONS (3)
  - Venous occlusion [Not Recovered/Not Resolved]
  - Diabetes mellitus [Not Recovered/Not Resolved]
  - Hypertension [Not Recovered/Not Resolved]
